FAERS Safety Report 5228682-5 (Version None)
Quarter: 2007Q1

REPORT INFORMATION
  Report Type: 
  Country: None (occurrence: None)
  Receive Date: 20070205
  Receipt Date: 20070129
  Transmission Date: 20070707
  Serious: Yes (Other)
  Sender: FDA-Public Use
  Company Number: GB-GLAXOSMITHKLINE-B0456869A

PATIENT
  Age: 47 Year
  Sex: Female
  Weight: 50 kg

DRUGS (3)
  1. CEFUROXIME SODIUM [Suspect]
     Indication: PROPHYLAXIS
     Route: 042
     Dates: start: 20061001
  2. IBUPROFEN [Concomitant]
     Dosage: 600MG FOUR TIMES PER DAY
     Route: 048
     Dates: start: 20061003, end: 20061007
  3. ACETAMINOPHEN [Concomitant]
     Dosage: 1G FOUR TIMES PER DAY
     Route: 048
     Dates: start: 20061003, end: 20061007

REACTIONS (2)
  - PHARYNGEAL OEDEMA [None]
  - WHEEZING [None]
